FAERS Safety Report 5102737-8 (Version None)
Quarter: 2006Q3

REPORT INFORMATION
  Report Type: 
  Country: None (occurrence: None)
  Receive Date: 20060907
  Receipt Date: 20060816
  Transmission Date: 20061208
  Serious: Yes (Other)
  Sender: FDA-Public Use
  Company Number: DE200607003425

PATIENT
  Age: 51 Year
  Sex: Female
  Weight: 75 kg

DRUGS (3)
  1. YENTREVE (DULOXETINE HYDROCHLORIDE) CAPSULE [Suspect]
     Indication: STRESS URINARY INCONTINENCE
     Dosage: SEE IMAGE
     Route: 048
     Dates: start: 20050913, end: 20060301
  2. YENTREVE (DULOXETINE HYDROCHLORIDE) CAPSULE [Suspect]
     Indication: STRESS URINARY INCONTINENCE
     Dosage: SEE IMAGE
     Route: 048
     Dates: start: 20050901
  3. ORGAMETRIL (LYNESTRENOL) [Concomitant]

REACTIONS (1)
  - HYPERTENSION [None]
